FAERS Safety Report 17411597 (Version 1)
Quarter: 2020Q1

REPORT INFORMATION
  Report Type: Spontaneous
  Country: US (occurrence: US)
  Receive Date: 20200128
  Receipt Date: 20200128
  Transmission Date: 20200409
  Serious: Yes (Other)
  Sender: FDA-Public Use
  Company Number: None

PATIENT
  Age: 93 Year
  Sex: Female
  Weight: 58.97 kg

DRUGS (13)
  1. METOCREAM [Concomitant]
  2. OMEPRAZOLE. [Concomitant]
     Active Substance: OMEPRAZOLE
  3. LASIX [Concomitant]
     Active Substance: FUROSEMIDE
  4. CALCIUM-D [Concomitant]
  5. BIOTIN [Concomitant]
     Active Substance: BIOTIN
  6. MULTI-VIT [Concomitant]
     Active Substance: VITAMINS
  7. ECONAZOLE NITRATE CREAM 1% [Suspect]
     Active Substance: ECONAZOLE NITRATE
     Indication: FUNGAL INFECTION
     Dosage: ?          QUANTITY:85 G GRAM(S);?
     Route: 061
     Dates: start: 20191203, end: 20191205
  8. METOPROLOL. [Concomitant]
     Active Substance: METOPROLOL
  9. PROLIA [Concomitant]
     Active Substance: DENOSUMAB
  10. FIBERCON [Concomitant]
     Active Substance: CALCIUM POLYCARBOPHIL
  11. FOLIC ACID. [Concomitant]
     Active Substance: FOLIC ACID
  12. METHOTREXATE. [Concomitant]
     Active Substance: METHOTREXATE
  13. PROBIOTIC [Concomitant]
     Active Substance: PROBIOTICS NOS

REACTIONS (6)
  - Wound complication [None]
  - Erythema [None]
  - Skin burning sensation [None]
  - Rash [None]
  - Inflammation [None]
  - Pain [None]

NARRATIVE: CASE EVENT DATE: 20191204
